FAERS Safety Report 4338712-0 (Version None)
Quarter: 2004Q2

REPORT INFORMATION
  Report Type: 
  Country: None (occurrence: None)
  Receive Date: 20040409
  Receipt Date: 20040409
  Transmission Date: 20050107
  Serious: Yes (Other)
  Sender: FDA-Public Use
  Company Number: None

PATIENT
  Age: 35 Year
  Sex: Female
  Weight: 54.4316 kg

DRUGS (5)
  1. TWICE-A- DAY 12 HOUR  NASAL SPRAY (MFGD BY PROPHARMA) [Suspect]
     Indication: NASAL DECONGESTION THERAPY
     Dosage: NASAL SPRAY
     Route: 045
  2. PREVACID [Suspect]
  3. LEVSIN PB [Suspect]
  4. ORTHO TRI-CYCLEN [Suspect]
  5. ADDERALL 10 [Suspect]

REACTIONS (4)
  - ABDOMINAL PAIN [None]
  - BACK PAIN [None]
  - DIARRHOEA [None]
  - GASTROINTESTINAL DISORDER [None]
